FAERS Safety Report 8399255-0 (Version None)
Quarter: 2012Q2

REPORT INFORMATION
  Report Type: 
  Country: None (occurrence: None)
  Receive Date: 20120531
  Receipt Date: 20120523
  Transmission Date: 20120825
  Serious: Yes (Life-Threatening)
  Sender: FDA-Public Use
  Company Number: JP-GLAXOSMITHKLINE-B0773938A

PATIENT
  Sex: Female
  Weight: 41 kg

DRUGS (4)
  1. BLOOD TRANSFUSION [Concomitant]
     Dates: start: 20111019, end: 20111019
  2. HYCAMTIN [Suspect]
     Indication: OVARIAN CANCER RECURRENT
     Dosage: 1.6MG PER DAY
     Route: 042
     Dates: start: 20111219, end: 20111219
  3. GRANISETRON [Concomitant]
     Indication: PROPHYLAXIS OF NAUSEA AND VOMITING
     Dosage: 3MG PER DAY
     Route: 042
     Dates: start: 20111219, end: 20111219
  4. BLOOD TRANSFUSION [Concomitant]
     Dates: start: 20110210, end: 20110210

REACTIONS (1)
  - RENAL FAILURE ACUTE [None]
